FAERS Safety Report 25471090 (Version 2)
Quarter: 2025Q2

REPORT INFORMATION
  Report Type: Spontaneous
  Country: FR (occurrence: FR)
  Receive Date: 20250624
  Receipt Date: 20250630
  Transmission Date: 20250716
  Serious: Yes (Life-Threatening, Hospitalization)
  Sender: CHEPLAPHARM
  Company Number: None

PATIENT
  Age: 60 Year
  Sex: Female

DRUGS (11)
  1. QUETIAPINE [Suspect]
     Active Substance: QUETIAPINE
     Indication: Psychotic disorder
     Dosage: DAILY DOSE: 800 MILLIGRAM
  2. QUETIAPINE [Suspect]
     Active Substance: QUETIAPINE
     Indication: Psychotic disorder
  3. QUETIAPINE [Suspect]
     Active Substance: QUETIAPINE
     Indication: Psychotic disorder
  4. CARBAMAZEPINE [Suspect]
     Active Substance: CARBAMAZEPINE
     Indication: Psychotic disorder
     Dosage: DAILY DOSE: 400 MILLIGRAM
  5. LEVOTHYROXINE [Suspect]
     Active Substance: LEVOTHYROXINE
  6. AMLODIPINE [Suspect]
     Active Substance: AMLODIPINE BESYLATE
  7. RAMIPRIL [Suspect]
     Active Substance: RAMIPRIL
  8. PREGABALIN [Suspect]
     Active Substance: PREGABALIN
  9. ZOPICLONE [Suspect]
     Active Substance: ZOPICLONE
     Dosage: DAILY DOSE: 75 MILLIGRAM
  10. LOXAPINE [Concomitant]
     Active Substance: LOXAPINE
  11. LOXAPINE [Concomitant]
     Active Substance: LOXAPINE

REACTIONS (4)
  - Hypothermia [Recovered/Resolved]
  - Nervous system disorder [Unknown]
  - Sinus bradycardia [Unknown]
  - Electrocardiogram QT prolonged [Unknown]
